FAERS Safety Report 17508372 (Version 4)
Quarter: 2021Q1

REPORT INFORMATION
  Report Type: Other
  Country: AT (occurrence: AT)
  Receive Date: 20200306
  Receipt Date: 20210116
  Transmission Date: 20210419
  Serious: Yes (Other)
  Sender: FDA-Public Use
  Company Number: AT-ROCHE-2514206

PATIENT
  Age: 82 Year
  Sex: Female
  Weight: 70 kg

DRUGS (11)
  1. NOMEXOR [Concomitant]
     Active Substance: NEBIVOLOL HYDROCHLORIDE
     Dates: start: 20170305
  2. PACLITAXEL. [Suspect]
     Active Substance: PACLITAXEL
     Indication: HER2 POSITIVE BREAST CANCER
     Dosage: MOST RECENT DOSE PRIOR TO THE EVENT: 14/AUG/2019 AND 21/AUG/2019.
     Route: 042
     Dates: start: 20190731
  3. LOPERAMIDE [Concomitant]
     Active Substance: LOPERAMIDE
     Indication: DIARRHOEA
     Dates: start: 20190821, end: 20191030
  4. SORTIS [Concomitant]
     Active Substance: ATORVASTATIN
     Route: 065
     Dates: start: 20190711, end: 20190904
  5. GALVUS [Concomitant]
     Active Substance: VILDAGLIPTIN
     Route: 065
  6. TRASTUZUMAB. [Suspect]
     Active Substance: TRASTUZUMAB
     Indication: HER2 POSITIVE BREAST CANCER
     Dosage: MOST RECENT DOSE PRIOR TO THE EVENT: 07/AUG/2019?LATEST DOSE: 08/OCT/2019
     Route: 041
     Dates: start: 20190731
  7. RAMIPRIL. [Concomitant]
     Active Substance: RAMIPRIL
     Route: 065
     Dates: start: 20190711, end: 20200618
  8. PERTUZUMAB. [Suspect]
     Active Substance: PERTUZUMAB
     Indication: HER2 POSITIVE BREAST CANCER
     Dosage: MOST RECENT DOSE ON 07/AUG/2019 AND 03/OCT/2019
     Route: 042
     Dates: start: 20190731
  9. THROMBO ASS [Concomitant]
     Active Substance: ASPIRIN
     Dates: start: 20170305
  10. HYDROCHLOROTHIAZIDE. [Concomitant]
     Active Substance: HYDROCHLOROTHIAZIDE
     Route: 065
     Dates: start: 20190711, end: 20200616
  11. ZOFRAN [Concomitant]
     Active Substance: ONDANSETRON HYDROCHLORIDE
     Route: 065
     Dates: start: 20170726, end: 20200715

REACTIONS (3)
  - Fatigue [Recovered/Resolved]
  - Acute kidney injury [Recovered/Resolved]
  - Diarrhoea [Recovered/Resolved]

NARRATIVE: CASE EVENT DATE: 20190821
